FAERS Safety Report 12055907 (Version 1)
Quarter: 2016Q1

REPORT INFORMATION
  Report Type: Spontaneous
  Country: FR (occurrence: FR)
  Receive Date: 20160209
  Receipt Date: 20160209
  Transmission Date: 20160526
  Serious: Yes (Death, Other)
  Sender: FDA-Public Use
  Company Number: PHHY2015FR037579

PATIENT
  Age: 40 Year
  Sex: Female

DRUGS (14)
  1. TRASTUZUMAB [Concomitant]
     Active Substance: TRASTUZUMAB
     Dosage: 6 MG/KG, UNK
     Route: 065
     Dates: start: 200704
  2. CAPECITABINE. [Suspect]
     Active Substance: CAPECITABINE
     Indication: METASTASES TO CENTRAL NERVOUS SYSTEM
     Dosage: 2000 MG/M2, QD
     Route: 065
     Dates: end: 200903
  3. TRASTUZUMAB [Concomitant]
     Active Substance: TRASTUZUMAB
     Indication: METASTASES TO CENTRAL NERVOUS SYSTEM
     Dosage: 8 MG/KG, UNK
     Route: 065
     Dates: start: 200609, end: 200704
  4. LAPATINIB [Suspect]
     Active Substance: LAPATINIB
     Dosage: 1000 MG, QD (4 PILLS OF 250MG/DAY)
     Route: 065
  5. LAPATINIB [Suspect]
     Active Substance: LAPATINIB
     Dosage: 1000 MG, QD
     Route: 065
     Dates: start: 200907
  6. CAPECITABINE. [Suspect]
     Active Substance: CAPECITABINE
     Dosage: 2000 MG, QD
     Route: 065
     Dates: start: 200907
  7. LAPATINIB [Suspect]
     Active Substance: LAPATINIB
     Dosage: 5 DF, QD
     Route: 065
     Dates: start: 201006, end: 201010
  8. LAPATINIB [Suspect]
     Active Substance: LAPATINIB
     Dosage: 1500 MG, QD
     Route: 065
  9. CAPECITABINE. [Suspect]
     Active Substance: CAPECITABINE
     Dosage: UNK
  10. LAPATINIB [Suspect]
     Active Substance: LAPATINIB
     Indication: METASTASES TO CENTRAL NERVOUS SYSTEM
     Dosage: 1250 MG, QD (5 PILLS OF 250MG/DAY)
     Route: 065
  11. CAPECITABINE. [Suspect]
     Active Substance: CAPECITABINE
     Dosage: 2000 MG, QD
     Route: 065
     Dates: start: 201101
  12. TRASTUZUMAB [Concomitant]
     Active Substance: TRASTUZUMAB
     Dosage: 6 MG/KG, UNK
     Route: 065
     Dates: start: 200609, end: 200704
  13. LAPATINIB [Suspect]
     Active Substance: LAPATINIB
     Dosage: 1000 MG, QD
     Route: 065
  14. CAPECITABINE. [Suspect]
     Active Substance: CAPECITABINE
     Dosage: 2000 MG, QD
     Route: 065
     Dates: start: 201006

REACTIONS (8)
  - Liver function test abnormal [Recovered/Resolved]
  - Seizure [Unknown]
  - Paronychia [Unknown]
  - General physical health deterioration [Fatal]
  - Jaundice [Unknown]
  - Diarrhoea [Unknown]
  - Gastrointestinal disorder [Recovered/Resolved]
  - Vomiting [Unknown]

NARRATIVE: CASE EVENT DATE: 201002
